FAERS Safety Report 8841182 (Version 1)
Quarter: 2012Q4

REPORT INFORMATION
  Report Type: 
  Country: CN (occurrence: CN)
  Receive Date: 20121015
  Receipt Date: 20121015
  Transmission Date: 20130627
  Serious: Yes (Other)
  Sender: FDA-Public Use
  Company Number: CN-JNJFOC-20121006140

PATIENT
  Age: 23 Year
  Sex: Male

DRUGS (3)
  1. DAKTARIN [Suspect]
     Route: 061
  2. DAKTARIN [Suspect]
     Indication: BALANOPOSTHITIS INFECTIVE
     Dosage: 20 g
     Route: 061
     Dates: start: 20121004, end: 20121009
  3. FLUCONAZOLE [Suspect]
     Indication: PRODUCT USED FOR UNKNOWN INDICATION
     Route: 048
     Dates: start: 20121004, end: 20121008

REACTIONS (4)
  - Lichen sclerosus [Not Recovered/Not Resolved]
  - Application site reaction [Recovering/Resolving]
  - Application site pruritus [Recovered/Resolved]
  - Application site burn [Recovered/Resolved]
